FAERS Safety Report 15595494 (Version 1)
Quarter: 2018Q4

REPORT INFORMATION
  Report Type: Spontaneous
  Country: US (occurrence: US)
  Receive Date: 20181107
  Receipt Date: 20181107
  Transmission Date: 20190205
  Serious: Yes (Death, Other)
  Sender: FDA-Public Use
  Company Number: US-IBIGEN-2018.05134

PATIENT
  Age: 47 Year
  Sex: Female

DRUGS (2)
  1. UNK [Suspect]
     Active Substance: UNSPECIFIED INGREDIENT
     Indication: PERITONITIS
     Route: 042
  2. CLINDAMYCIN. [Suspect]
     Active Substance: CLINDAMYCIN
     Indication: PERITONITIS

REACTIONS (5)
  - Condition aggravated [Fatal]
  - Multiple organ dysfunction syndrome [Fatal]
  - Cardio-respiratory arrest [Fatal]
  - Drug ineffective [Fatal]
  - Drug resistance [Fatal]
